FAERS Safety Report 4472850-7 (Version None)
Quarter: 2004Q4

REPORT INFORMATION
  Report Type: 
  Country: None (occurrence: None)
  Receive Date: 20041012
  Receipt Date: 20041012
  Transmission Date: 20050328
  Serious: Yes (Disabling)
  Sender: FDA-Public Use
  Company Number: None

PATIENT
  Sex: Female
  Weight: 63.5036 kg

DRUGS (1)
  1. VIOXX [Suspect]
     Indication: GUILLAIN-BARRE SYNDROME
     Dosage: 1 TABLET PER DAY ORAL
     Route: 048
     Dates: start: 19900102, end: 20030701

REACTIONS (1)
  - CHEST PAIN [None]
